FAERS Safety Report 9380371 (Version 1)
Quarter: 2013Q3

REPORT INFORMATION
  Report Type: Spontaneous
  Country: US (occurrence: US)
  Receive Date: 20130702
  Receipt Date: 20130702
  Transmission Date: 20140515
  Serious: Yes (Other)
  Sender: FDA-Public Use
  Company Number: US-ASTRAZENECA-2013SE48713

PATIENT
  Age: 70 Year
  Sex: Female

DRUGS (2)
  1. SEROQUEL XR [Suspect]
     Indication: BIPOLAR DISORDER
     Route: 048
     Dates: start: 2005
  2. LISINOPRIL [Suspect]
     Indication: HYPERTENSION
     Route: 065

REACTIONS (2)
  - Renal failure [Unknown]
  - Palpitations [Unknown]
